FAERS Safety Report 18798342 (Version 2)
Quarter: 2021Q1

REPORT INFORMATION
  Report Type: Spontaneous
  Country: US (occurrence: US)
  Receive Date: 20210128
  Receipt Date: 20210223
  Transmission Date: 20210419
  Serious: No
  Sender: FDA-Public Use
  Company Number: US-HETERO-HET2021US00077

PATIENT
  Sex: Male
  Weight: 84 kg

DRUGS (1)
  1. SILDENAFIL. [Suspect]
     Active Substance: SILDENAFIL
     Indication: SEXUAL DYSFUNCTION
     Dosage: 50 MG PRN
     Route: 048
     Dates: start: 20210122, end: 20210125

REACTIONS (2)
  - Product substitution issue [Unknown]
  - Drug ineffective [Unknown]
